FAERS Safety Report 16137961 (Version 1)
Quarter: 2019Q1

REPORT INFORMATION
  Report Type: Spontaneous
  Country: FR (occurrence: FR)
  Receive Date: 20190330
  Receipt Date: 20190330
  Transmission Date: 20190418
  Serious: Yes (Life-Threatening, Hospitalization, Other)
  Sender: FDA-Public Use
  Company Number: FR-AUROBINDO-AUR-APL-2019-016985

PATIENT

DRUGS (15)
  1. LYSINE ASPIRIN [Concomitant]
     Active Substance: ASPIRIN DL-LYSINE
     Indication: PRODUCT USED FOR UNKNOWN INDICATION
     Dosage: UNK
     Route: 065
  2. BACLOFEN. [Concomitant]
     Active Substance: BACLOFEN
     Indication: PRODUCT USED FOR UNKNOWN INDICATION
     Dosage: 1 TABLET IN THE MORNING, AFTERNOON AND EVENING
     Route: 048
     Dates: end: 20180211
  3. SOTALOL. [Interacting]
     Active Substance: SOTALOL
     Indication: TORSADE DE POINTES
     Dosage: UNKNOWN
     Route: 065
     Dates: start: 20180215, end: 20180223
  4. AMIODARONE [Suspect]
     Active Substance: AMIODARONE
     Indication: ATRIAL FIBRILLATION
     Dosage: 1200 MG CONTINUOUSLY FOR ONE DAY
     Route: 042
     Dates: start: 20180214, end: 20180214
  5. SERTRALINE [Suspect]
     Active Substance: SERTRALINE HYDROCHLORIDE
     Indication: TORSADE DE POINTES
     Dosage: UNKNOWN
     Route: 065
     Dates: start: 20180216, end: 20180223
  6. WARFARIN [Concomitant]
     Active Substance: WARFARIN
     Indication: PRODUCT USED FOR UNKNOWN INDICATION
     Dosage: 1 TABLET IN THE EVENING
     Route: 048
     Dates: end: 20180211
  7. DESLORATADINE. [Concomitant]
     Active Substance: DESLORATADINE
     Indication: PRODUCT USED FOR UNKNOWN INDICATION
     Dosage: 1 TABLET IN THE MORNING
     Route: 048
     Dates: end: 20180211
  8. CEFOTAXIME [Concomitant]
     Active Substance: CEFOTAXIME SODIUM
     Indication: ESCHERICHIA URINARY TRACT INFECTION
     Dosage: A DOSE OF 16G PER DAY INTRAVENOUSLY
     Route: 042
     Dates: start: 20180211, end: 20180211
  9. LORMETAZEPAM [Concomitant]
     Active Substance: LORMETAZEPAM
     Indication: PRODUCT USED FOR UNKNOWN INDICATION
     Dosage: 1 TABLET WHEN GOING TO BED
     Route: 048
     Dates: end: 20180211
  10. ZOLOFT [Suspect]
     Active Substance: SERTRALINE HYDROCHLORIDE
     Indication: PRODUCT USED FOR UNKNOWN INDICATION
     Dosage: 1 GELULE IN THE MORNING
     Route: 048
     Dates: start: 20180211
  11. ALPRAZOLAM. [Concomitant]
     Active Substance: ALPRAZOLAM
     Indication: PRODUCT USED FOR UNKNOWN INDICATION
     Dosage: 1 TABLET IN THE EVENING
     Route: 048
     Dates: end: 20180211
  12. ACETYLSALICYLATE LYSINE [Concomitant]
     Active Substance: ASPIRIN DL-LYSINE
     Indication: PRODUCT USED FOR UNKNOWN INDICATION
     Dosage: 1 BAG IN THE AFTERNOON
     Route: 048
     Dates: end: 20180211
  13. SOTALEX [Suspect]
     Active Substance: SOTALOL
     Indication: PRODUCT USED FOR UNKNOWN INDICATION
     Dosage: 1 TABLET - IN THE MORNING AND EVENING
     Route: 048
     Dates: end: 20180211
  14. PARACETAMOL [Concomitant]
     Active Substance: ACETAMINOPHEN
     Dosage: 1 TABLET IN THE MORNING, AFTERNOON AND EVENING
     Route: 048
     Dates: end: 20180211
  15. AMIODARONE TABLETS [Suspect]
     Active Substance: AMIODARONE
     Indication: TORSADE DE POINTES
     Dosage: ORAL DOSE OF 200 MG PER DAY
     Route: 048
     Dates: start: 20180215, end: 20180223

REACTIONS (21)
  - Acute coronary syndrome [Recovered/Resolved]
  - Torsade de pointes [Recovered/Resolved]
  - Atrial fibrillation [Recovered/Resolved]
  - Altered state of consciousness [Recovered/Resolved]
  - Somnolence [Recovered/Resolved]
  - Femoral neck fracture [Recovered/Resolved]
  - Electrocardiogram T wave abnormal [Recovered/Resolved]
  - Cardiac arrest [Recovered/Resolved]
  - Escherichia urinary tract infection [Recovered/Resolved]
  - Labelled drug-drug interaction medication error [Recovered/Resolved]
  - Influenza [Recovered/Resolved]
  - Medication error [Recovered/Resolved]
  - Coronary artery stenosis [Recovered/Resolved]
  - Septic shock [Recovered/Resolved]
  - Fall [Recovered/Resolved]
  - Electrocardiogram QT prolonged [Recovered/Resolved]
  - Blood pressure immeasurable [Recovered/Resolved]
  - International normalised ratio increased [Recovered/Resolved]
  - Hypoxia [Recovered/Resolved]
  - Electrocardiogram ST segment elevation [Recovered/Resolved]
  - Livedo reticularis [Recovered/Resolved]

NARRATIVE: CASE EVENT DATE: 20180210
